FAERS Safety Report 7575707-8 (Version None)
Quarter: 2011Q2

REPORT INFORMATION
  Report Type: 
  Country: None (occurrence: None)
  Receive Date: 20110628
  Receipt Date: 20110621
  Transmission Date: 20111010
  Serious: No
  Sender: FDA-Public Use
  Company Number: US-BIOGENIDEC-2010BI031762

PATIENT
  Age: 42 Year
  Sex: Female

DRUGS (1)
  1. TYSABRI [Suspect]
     Indication: MULTIPLE SCLEROSIS
     Route: 042
     Dates: start: 20100318

REACTIONS (16)
  - PAIN IN EXTREMITY [None]
  - FACIAL SPASM [None]
  - DRUG INEFFECTIVE [None]
  - MULTIPLE SCLEROSIS [None]
  - MEMORY IMPAIRMENT [None]
  - FATIGUE [None]
  - HEADACHE [None]
  - DEPRESSION [None]
  - MUSCLE SPASMS [None]
  - BRADYPHRENIA [None]
  - SUICIDAL IDEATION [None]
  - APHASIA [None]
  - MULTIPLE SCLEROSIS RELAPSE [None]
  - STRESS [None]
  - DRUG SPECIFIC ANTIBODY PRESENT [None]
  - DYSPHAGIA [None]
